FAERS Safety Report 6308026-8 (Version None)
Quarter: 2009Q3

REPORT INFORMATION
  Report Type: 
  Country: None (occurrence: None)
  Receive Date: 20090813
  Receipt Date: 20090806
  Transmission Date: 20100115
  Serious: Yes (Other)
  Sender: FDA-Public Use
  Company Number: A0800960A

PATIENT
  Age: 83 Year
  Sex: Female

DRUGS (11)
  1. LOVAZA [Suspect]
     Dosage: 1CAP THREE TIMES PER DAY
     Route: 048
     Dates: start: 20070101
  2. PREDNISONE [Concomitant]
  3. ALLOPURINOL [Concomitant]
  4. COLCHICINE [Concomitant]
  5. GABAPENTIN [Concomitant]
  6. SYNTHROID [Concomitant]
  7. AVAPRO [Concomitant]
  8. BONIVA [Concomitant]
  9. CALCIUM PLUS D [Concomitant]
  10. ZETIA [Concomitant]
  11. LIPITOR [Concomitant]

REACTIONS (3)
  - GAIT DISTURBANCE [None]
  - GOUT [None]
  - PAIN IN EXTREMITY [None]
